FAERS Safety Report 24578919 (Version 1)
Quarter: 2024Q4

REPORT INFORMATION
  Report Type: Report from Study
  Country: US (occurrence: US)
  Receive Date: 20241105
  Receipt Date: 20241105
  Transmission Date: 20250114
  Serious: Yes (Hospitalization)
  Sender: EMD SERONO INC
  Company Number: US-Merck Healthcare KGaA-2024058377

PATIENT
  Age: 55 Year
  Sex: Female

DRUGS (2)
  1. REBIF [Suspect]
     Active Substance: INTERFERON BETA-1A
     Indication: Product used for unknown indication
     Dosage: FOR TWO WEEKS
     Route: 058
     Dates: start: 2004
  2. REBIF [Suspect]
     Active Substance: INTERFERON BETA-1A
     Dosage: FOR TWO WEEKS
     Route: 058

REACTIONS (1)
  - Hypertension [Unknown]
